FAERS Safety Report 23378150 (Version 1)
Quarter: 2024Q1

REPORT INFORMATION
  Report Type: Spontaneous
  Country: FR (occurrence: FR)
  Receive Date: 20240108
  Receipt Date: 20240108
  Transmission Date: 20240409
  Serious: Yes (Life-Threatening)
  Sender: FDA-Public Use
  Company Number: None

PATIENT
  Age: 27 Year
  Sex: Female

DRUGS (8)
  1. CABERGOLINE [Suspect]
     Active Substance: CABERGOLINE
     Indication: Lactation inhibition therapy
     Dosage: 2 DF, SINGLE
     Route: 048
     Dates: start: 20231003, end: 20231003
  2. TRAMADOL HYDROCHLORIDE [Suspect]
     Active Substance: TRAMADOL HYDROCHLORIDE
     Dates: start: 20231005
  3. KETOPROFEN [Suspect]
     Active Substance: KETOPROFEN
     Indication: Pain
     Dates: start: 20231003
  4. ROPIVACAINE HYDROCHLORIDE [Concomitant]
     Active Substance: ROPIVACAINE HYDROCHLORIDE
     Indication: Anaesthesia
     Dates: start: 20231002, end: 20231002
  5. GABAPENTIN [Concomitant]
     Active Substance: GABAPENTIN
     Dosage: 800 MG, 1X/DAY
     Dates: start: 20231003, end: 20231005
  6. EPINEPHRINE\LIDOCAINE [Concomitant]
     Active Substance: EPINEPHRINE\LIDOCAINE
     Indication: Anaesthesia
  7. SUFENTANIL [Concomitant]
     Active Substance: SUFENTANIL
     Indication: Anaesthesia
     Dates: start: 20231002, end: 20231002
  8. ACETAMINOPHEN [Concomitant]
     Active Substance: ACETAMINOPHEN
     Indication: Pain
     Dosage: 1 G, AS NEEDED
     Dates: start: 20231003

REACTIONS (1)
  - Haemorrhagic stroke [Recovered/Resolved with Sequelae]

NARRATIVE: CASE EVENT DATE: 20231006
